FAERS Safety Report 14036203 (Version 1)
Quarter: 2017Q4

REPORT INFORMATION
  Report Type: Spontaneous
  Country: US (occurrence: US)
  Receive Date: 20171003
  Receipt Date: 20171003
  Transmission Date: 20180321
  Serious: No
  Sender: FDA-Public Use
  Company Number: US-ROCHE-1978111

PATIENT
  Age: 58 Year
  Sex: Male
  Weight: 65.83 kg

DRUGS (1)
  1. OCREVUS [Suspect]
     Active Substance: OCRELIZUMAB
     Indication: PRODUCT USED FOR UNKNOWN INDICATION
     Route: 065
     Dates: start: 2017

REACTIONS (4)
  - Fatigue [Unknown]
  - Paraesthesia [Unknown]
  - Ill-defined disorder [Unknown]
  - Pruritus [Unknown]

NARRATIVE: CASE EVENT DATE: 201708
